FAERS Safety Report 7629589-6 (Version None)
Quarter: 2011Q3

REPORT INFORMATION
  Report Type: 
  Country: None (occurrence: None)
  Receive Date: 20110722
  Receipt Date: 20110712
  Transmission Date: 20111222
  Serious: Yes (Hospitalization, Other)
  Sender: FDA-Public Use
  Company Number: US-ROCHE-721626

PATIENT
  Sex: Male
  Weight: 72.6 kg

DRUGS (3)
  1. RETIN-A [Concomitant]
     Dates: start: 19950101
  2. ACCUTANE [Suspect]
     Route: 048
     Dates: start: 19950920, end: 19960201
  3. AMPICILLIN SODIUM [Concomitant]
     Dates: start: 19950101

REACTIONS (11)
  - PANCREATITIS [None]
  - BACK PAIN [None]
  - STRESS [None]
  - EPISTAXIS [None]
  - INTESTINAL OBSTRUCTION [None]
  - INTESTINAL HAEMORRHAGE [None]
  - ANAEMIA [None]
  - IRRITABLE BOWEL SYNDROME [None]
  - COLITIS ULCERATIVE [None]
  - ARTHRALGIA [None]
  - INFLAMMATORY BOWEL DISEASE [None]
